FAERS Safety Report 22135815 (Version 1)
Quarter: 2023Q1

REPORT INFORMATION
  Report Type: Spontaneous
  Country: US (occurrence: None)
  Receive Date: 20230323
  Receipt Date: 20230323
  Transmission Date: 20230418
  Serious: Yes (Life-Threatening, Other)
  Sender: FDA-Public Use
  Company Number: None

PATIENT
  Age: 62 Year
  Sex: Female
  Weight: 56.25 kg

DRUGS (23)
  1. BELSOMRA [Suspect]
     Active Substance: SUVOREXANT
     Indication: Insomnia
     Dosage: OTHER QUANTITY : .5 TABLET(S);?FREQUENCY : AT BEDTIME;?
     Route: 048
     Dates: start: 20230311, end: 20230313
  2. PROGESTERONE [Concomitant]
     Active Substance: PROGESTERONE
  3. THYROID [Concomitant]
     Active Substance: LEVOTHYROXINE\LIOTHYRONINE
  4. LORAZEPAM [Concomitant]
     Active Substance: LORAZEPAM
  5. ZYRTEC [Concomitant]
     Active Substance: CETIRIZINE HYDROCHLORIDE
  6. LEVOMEFOLATE CALCIUM [Concomitant]
     Active Substance: LEVOMEFOLATE CALCIUM
  7. IODINE\POTASSIUM IODIDE [Concomitant]
     Active Substance: IODINE\POTASSIUM IODIDE
  8. VITAMIN C [Concomitant]
     Active Substance: ASCORBIC ACID
  9. PHOSPHATIDYL SERINE [Concomitant]
     Active Substance: PHOSPHATIDYL SERINE
  10. DIMETHYL SULFONE [Concomitant]
     Active Substance: DIMETHYL SULFONE
  11. Vit K2 [Concomitant]
  12. Theanine Serene with Relora [Concomitant]
  13. GABA [Concomitant]
     Active Substance: HOMEOPATHICS
  14. MAGNESIUM [Concomitant]
     Active Substance: MAGNESIUM
  15. TAURINE [Concomitant]
     Active Substance: TAURINE
  16. DIETARY SUPPLEMENT [Concomitant]
     Active Substance: DIETARY SUPPLEMENT
  17. RELORA [Concomitant]
  18. holy basil leaf extract [Concomitant]
  19. MELATONIN [Concomitant]
     Active Substance: MELATONIN
  20. Nature^s plus exotic red super fruits adults multivitamin [Concomitant]
  21. PEPPERMINT OIL [Concomitant]
     Active Substance: PEPPERMINT OIL
  22. VITAMIN D3 [Concomitant]
     Active Substance: CHOLECALCIFEROL
  23. OMEGA 3 [Concomitant]
     Active Substance: CAPSAICIN

REACTIONS (5)
  - Blood pressure increased [None]
  - Palpitations [None]
  - Sleep disorder [None]
  - Cardiac failure [None]
  - Near death experience [None]

NARRATIVE: CASE EVENT DATE: 20230311
